FAERS Safety Report 12904869 (Version 13)
Quarter: 2019Q4

REPORT INFORMATION
  Report Type: Spontaneous
  Country: US (occurrence: US)
  Receive Date: 20161102
  Receipt Date: 20191108
  Transmission Date: 20200122
  Serious: Yes (Hospitalization)
  Sender: FDA-Public Use
  Company Number: US-ACTELION-A-US2016-144841

PATIENT
  Age: 62 Year
  Sex: Female
  Weight: 86.17 kg

DRUGS (7)
  1. OPSUMIT [Suspect]
     Active Substance: MACITENTAN
     Indication: PULMONARY HYPERTENSION
     Dosage: 10 MG, QD
     Route: 048
     Dates: start: 20150421
  2. OPSUMIT [Suspect]
     Active Substance: MACITENTAN
     Dosage: 10 MG, QD
     Route: 048
  3. INSULIN [Concomitant]
     Active Substance: INSULIN NOS
  4. TYVASO [Concomitant]
     Active Substance: TREPROSTINIL
  5. ELIQUIS [Concomitant]
     Active Substance: APIXABAN
  6. ADCIRCA [Concomitant]
     Active Substance: TADALAFIL
  7. AMLODIPINE [Concomitant]
     Active Substance: AMLODIPINE BESYLATE

REACTIONS (24)
  - Systemic lupus erythematosus [Unknown]
  - Weight decreased [Unknown]
  - Headache [Unknown]
  - Tooth extraction [Unknown]
  - Dizziness [Unknown]
  - Eye disorder [Unknown]
  - Vision blurred [Unknown]
  - Coma [Unknown]
  - Decreased appetite [Unknown]
  - Flatulence [Unknown]
  - Choking [Unknown]
  - Cholecystectomy [Unknown]
  - Feeling cold [Unknown]
  - Rhinorrhoea [Unknown]
  - Fatigue [Unknown]
  - Dyspnoea exertional [Unknown]
  - Bronchitis [Unknown]
  - Abdominal pain upper [Unknown]
  - Throat irritation [Unknown]
  - Dyspnoea [Unknown]
  - Change of bowel habit [Unknown]
  - Vasodilatation [Unknown]
  - Cough [Unknown]
  - Nasal disorder [Unknown]

NARRATIVE: CASE EVENT DATE: 20161026
